FAERS Safety Report 10016804 (Version 2)
Quarter: 2014Q2

REPORT INFORMATION
  Report Type: Spontaneous
  Country: CA (occurrence: CA)
  Receive Date: 20140318
  Receipt Date: 20140515
  Transmission Date: 20141212
  Serious: Yes (Other)
  Sender: FDA-Public Use
  Company Number: CHPA2014CA004005

PATIENT
  Age: 60 Year
  Sex: Female

DRUGS (8)
  1. KERI ORIGINAL SOFTLY SCENTED [Suspect]
     Indication: DRY SKIN
     Dosage: UNK, QD
     Route: 061
  2. KERI ORIGINAL SOFTLY SCENTED [Suspect]
     Indication: PRURITUS
     Dosage: UNK, QD
     Route: 061
  3. KERI ORIGINAL SOFTLY SCENTED [Suspect]
     Indication: OFF LABEL USE
  4. KERI FAST ABSORBING SENSITIE SKIN [Suspect]
     Indication: DRY SKIN
     Dosage: UNK UNK, QD
     Route: 061
     Dates: start: 201312
  5. KERI FAST ABSORBING SENSITIE SKIN [Suspect]
     Indication: PRURITUS
  6. KERI FAST ABSORBING SENSITIE SKIN [Suspect]
     Indication: OFF LABEL USE
  7. ACETYLSALICYLIC ACID [Suspect]
  8. SEPTRA [Suspect]
     Indication: CYSTITIS

REACTIONS (6)
  - Cystitis [Recovered/Resolved]
  - Swelling [Recovered/Resolved]
  - Urticaria [Recovered/Resolved]
  - Dry skin [Recovered/Resolved]
  - Skin fissures [Recovered/Resolved]
  - Therapeutic response changed [Unknown]
